FAERS Safety Report 14988547 (Version 2)
Quarter: 2018Q2

REPORT INFORMATION
  Report Type: Spontaneous
  Country: US (occurrence: US)
  Receive Date: 20180608
  Receipt Date: 20180613
  Transmission Date: 20180711
  Serious: Yes (Hospitalization)
  Sender: FDA-Public Use
  Company Number: US-PFIZER INC-2018231105

PATIENT
  Age: 37 Year
  Sex: Female

DRUGS (1)
  1. HEPARIN SODIUM. [Suspect]
     Active Substance: HEPARIN SODIUM
     Indication: EMBOLISM
     Dosage: UNK

REACTIONS (4)
  - Hydrocephalus [Unknown]
  - Cerebellar haemorrhage [Unknown]
  - Brain compression [Unknown]
  - Subdural haematoma [Unknown]
